FAERS Safety Report 18827280 (Version 1)
Quarter: 2021Q1

REPORT INFORMATION
  Report Type: Report from Study
  Country: IT (occurrence: IT)
  Receive Date: 20210202
  Receipt Date: 20210202
  Transmission Date: 20210419
  Serious: Yes (Other)
  Sender: FDA-Public Use
  Company Number: IT-JNJFOC-20210138115

PATIENT
  Age: 46 Year
  Sex: Female
  Weight: 70 kg

DRUGS (2)
  1. TRABECTEDIN [Suspect]
     Active Substance: TRABECTEDIN
     Indication: NEOPLASM MALIGNANT
     Dosage: EVERY 21 DAYS
     Route: 042
     Dates: start: 20200114, end: 20201231
  2. CAELYX [Suspect]
     Active Substance: DOXORUBICIN HYDROCHLORIDE
     Indication: NEOPLASM MALIGNANT
     Dosage: EVERY 21 DAYS
     Route: 042
     Dates: start: 20200114, end: 20201231

REACTIONS (10)
  - Asthenia [Unknown]
  - Mucosal inflammation [Unknown]
  - Nausea [Unknown]
  - Anaemia [Unknown]
  - Leukopenia [Unknown]
  - Neutropenia [Unknown]
  - Myalgia [Unknown]
  - Thrombocytopenia [Unknown]
  - Mucosal inflammation [Unknown]
  - Neutropenia [Unknown]

NARRATIVE: CASE EVENT DATE: 20201202
